FAERS Safety Report 11603651 (Version 1)
Quarter: 2015Q4

REPORT INFORMATION
  Report Type: Spontaneous
  Country: US (occurrence: US)
  Receive Date: 20151007
  Receipt Date: 20151007
  Transmission Date: 20160304
  Serious: No
  Sender: FDA-Public Use
  Company Number: PHEH2015US019636

PATIENT
  Sex: Male

DRUGS (2)
  1. LOTREL [Suspect]
     Active Substance: AMLODIPINE BESYLATE\BENAZEPRIL HYDROCHLORIDE
     Dosage: 1 DF, (1 DF, (5 MG AMLODIPINE BESILATE, 40 MG BENAZEPRIL HYDROCHLORIDE)
  2. LOTREL [Suspect]
     Active Substance: AMLODIPINE BESYLATE\BENAZEPRIL HYDROCHLORIDE
     Indication: PRODUCT USED FOR UNKNOWN INDICATION
     Dosage: 1 DF, (5 MG AMLODIPINE BESILATE, 20 MG BENAZEPRIL HYDROCHLORIDE)
     Route: 065

REACTIONS (2)
  - Stress [Unknown]
  - Blood pressure increased [Unknown]
